FAERS Safety Report 17577974 (Version 1)
Quarter: 2020Q1

REPORT INFORMATION
  Report Type: Spontaneous
  Country: ES (occurrence: ES)
  Receive Date: 20200324
  Receipt Date: 20200324
  Transmission Date: 20200409
  Serious: Yes (Other)
  Sender: FDA-Public Use
  Company Number: ES-PFIZER INC-2020125427

PATIENT
  Age: 11 Year
  Sex: Male
  Weight: 47.65 kg

DRUGS (3)
  1. PREDNISONA [Concomitant]
     Active Substance: PREDNISONE
     Indication: BURKITT^S LYMPHOMA
     Dosage: 60 MG/M2, 1X/DAY FOR 7 DAYS
     Route: 042
     Dates: start: 20200217, end: 20200223
  2. CICLOFOSFAMIDA [Suspect]
     Active Substance: CYCLOPHOSPHAMIDE
     Indication: BURKITT^S LYMPHOMA
     Dosage: 300 MG/M2, SINGLE (SINGLE DOSE DAY 1)
     Route: 042
     Dates: start: 20200217, end: 20200217
  3. VINCRISTINE SULFATE. [Suspect]
     Active Substance: VINCRISTINE SULFATE
     Indication: BURKITT^S LYMPHOMA
     Dosage: 1 MG/M2, SINGLE (SINGLE DOSE DAY 1)
     Route: 042
     Dates: start: 20200217, end: 20200217

REACTIONS (1)
  - Transaminases increased [Recovered/Resolved]

NARRATIVE: CASE EVENT DATE: 20200218
